FAERS Safety Report 18915038 (Version 1)
Quarter: 2021Q1

REPORT INFORMATION
  Report Type: Spontaneous
  Country: GB (occurrence: GB)
  Receive Date: 20210219
  Receipt Date: 20210219
  Transmission Date: 20210420
  Serious: Yes (Disabling)
  Sender: FDA-Public Use
  Company Number: GB-ACCORD-217461

PATIENT
  Age: 80 Year
  Sex: Female
  Weight: 72 kg

DRUGS (7)
  1. ESTRADIOL. [Concomitant]
     Active Substance: ESTRADIOL
     Dosage: INSERT 1 INTO VAGINA AT NIGHT EACH NIGHT FOR 2
     Route: 067
     Dates: start: 20190703
  2. ALLOPURINOL. [Suspect]
     Active Substance: ALLOPURINOL
     Indication: GOUT
     Dates: start: 20210203
  3. PREGABALIN. [Concomitant]
     Active Substance: PREGABALIN
     Dates: start: 20201204, end: 20210101
  4. COLCHICINE. [Concomitant]
     Active Substance: COLCHICINE
     Dates: start: 20210203
  5. CLOPIDOGREL [Concomitant]
     Active Substance: CLOPIDOGREL BISULFATE
     Indication: CEREBROVASCULAR ACCIDENT PROPHYLAXIS
     Dates: start: 20190514
  6. AMITRIPTYLINE [Concomitant]
     Active Substance: AMITRIPTYLINE
     Indication: NEURALGIA
     Dosage: AT NIGHT
     Dates: start: 20201125, end: 20201223
  7. CAPSAICIN. [Concomitant]
     Active Substance: CAPSAICIN
     Dosage: APPLY 3?4 TIMES/DAY
     Dates: start: 20201023

REACTIONS (1)
  - Pain in extremity [Recovered/Resolved]

NARRATIVE: CASE EVENT DATE: 20210205
